FAERS Safety Report 4412370-9 (Version None)
Quarter: 2004Q2

REPORT INFORMATION
  Report Type: 
  Country: None (occurrence: None)
  Receive Date: 20040630
  Receipt Date: 20040305
  Transmission Date: 20050107
  Serious: No
  Sender: FDA-Public Use
  Company Number: 04P-163-0252394-00

PATIENT
  Age: 81 Year
  Sex: Female

DRUGS (7)
  1. HUMIRA [Suspect]
     Indication: RHEUMATOID ARTHRITIS
     Dosage: 40 MG, 1 IN 2 WK, SUBCUTANEOUS
     Route: 058
     Dates: start: 20030101
  2. HYDROXYCHLOROQUINE PHOSPHATE [Concomitant]
  3. CELECOXIB [Concomitant]
  4. METHOTREXATE SODIUM [Concomitant]
  5. ESTRADIOL [Concomitant]
  6. LORATADINE [Suspect]
  7. FOLIC ACID [Concomitant]

REACTIONS (2)
  - MIGRAINE [None]
  - SKIN INFECTION [None]
